FAERS Safety Report 4610302-1 (Version None)
Quarter: 2005Q1

REPORT INFORMATION
  Report Type: 
  Country: None (occurrence: None)
  Receive Date: 20050314
  Receipt Date: 20050301
  Transmission Date: 20050727
  Serious: Yes (Other)
  Sender: FDA-Public Use
  Company Number: 2005035070

PATIENT
  Age: 74 Year
  Sex: Male
  Weight: 77.1115 kg

DRUGS (13)
  1. TIKOSYN [Suspect]
     Indication: ATRIAL FIBRILLATION
     Dosage: SEE IMAGE
     Route: 048
     Dates: start: 20050201, end: 20050201
  2. TIKOSYN [Suspect]
     Indication: ATRIAL FIBRILLATION
     Dosage: SEE IMAGE
     Route: 048
     Dates: start: 20050211
  3. TIKOSYN [Suspect]
     Indication: ATRIAL FIBRILLATION
     Dosage: SEE IMAGE
     Route: 048
     Dates: start: 20050221
  4. CARVEDILOL [Concomitant]
  5. FUROSEMIDE (FUROSEMIDE) [Concomitant]
  6. EPLERENONE (EPLERENONE) [Concomitant]
  7. SIMVASTATIN [Concomitant]
  8. LOSARTAN POTASSIUM [Concomitant]
  9. PAROXETINE HCL [Concomitant]
  10. WARFARIN SODIUM [Concomitant]
  11. DIGOXIN [Concomitant]
  12. ASPIRIN [Concomitant]
  13. NESIRITIDE (NESIRITIDE) [Concomitant]

REACTIONS (4)
  - ARRHYTHMIA [None]
  - COUGH [None]
  - HEADACHE [None]
  - THIRST [None]
